FAERS Safety Report 8814277 (Version 1)
Quarter: 2012Q4

REPORT INFORMATION
  Report Type: 
  Country: US (occurrence: US)
  Receive Date: 20120928
  Receipt Date: 20120928
  Transmission Date: 20130627
  Serious: Yes (Hospitalization)
  Sender: FDA-Public Use
  Company Number: US-BRISTOL-MYERS SQUIBB COMPANY-16727562

PATIENT
  Age: 3 Year
  Sex: Female

DRUGS (1)
  1. ABILIFY INJECTION [Suspect]

REACTIONS (2)
  - Somnolence [Unknown]
  - Overdose [Unknown]
